FAERS Safety Report 9348242 (Version 1)
Quarter: 2013Q2

REPORT INFORMATION
  Report Type: Spontaneous
  Country: US (occurrence: None)
  Receive Date: 20130612
  Receipt Date: 20130612
  Transmission Date: 20140414
  Serious: Yes (Life-Threatening)
  Sender: FDA-Public Use
  Company Number: None

PATIENT
  Sex: Female
  Weight: 31.7 kg

DRUGS (1)
  1. DIVALPROEX [Suspect]
     Indication: EPILEPSY
     Dosage: 500MG AM ?500MG AFTER NOON ?500MG PM
     Route: 048
     Dates: start: 20121110

REACTIONS (1)
  - Convulsion [None]
